FAERS Safety Report 8900152 (Version 1)
Quarter: 2012Q4

REPORT INFORMATION
  Report Type: 
  Country: NO (occurrence: NO)
  Receive Date: 20121109
  Receipt Date: 20121109
  Transmission Date: 20130627
  Serious: Yes (Hospitalization, Other)
  Sender: FDA-Public Use
  Company Number: NO-ACCORD-015204

PATIENT
  Age: 37 Year
  Sex: Female

DRUGS (2)
  1. QUETIAPINE FUMARATE [Suspect]
     Indication: BIPOLAR II DISORDER
     Route: 048
  2. LAMICTAL [Suspect]
     Indication: BIPOLAR II DISORDER
     Dosage: 350 mg morning + 400 mg evening
     Route: 048

REACTIONS (2)
  - Foetal death [Unknown]
  - Exposure during pregnancy [Unknown]
